FAERS Safety Report 19620428 (Version 1)
Quarter: 2021Q3

REPORT INFORMATION
  Report Type: Spontaneous
  Country: JP (occurrence: JP)
  Receive Date: 20210728
  Receipt Date: 20210728
  Transmission Date: 20211014
  Serious: Yes (Other)
  Sender: FDA-Public Use
  Company Number: JP-ROCHE-2877262

PATIENT

DRUGS (3)
  1. MEILAX [Suspect]
     Active Substance: ETHYL LOFLAZEPATE
     Indication: PRODUCT USED FOR UNKNOWN INDICATION
     Route: 048
  2. LEXOTAN [Suspect]
     Active Substance: BROMAZEPAM
     Indication: PRODUCT USED FOR UNKNOWN INDICATION
     Dosage: 3X 2 MILLIGRAM IN 1 DAY // 6 MILLIGRAM
     Route: 048
  3. RIVOTRIL [Suspect]
     Active Substance: CLONAZEPAM
     Indication: PRODUCT USED FOR UNKNOWN INDICATION
     Dosage: 0.5 MG WAS TAKEN A HALF TABLET 3 TIMES A DAY, AND I WAS SAID THAT THE DRUG CAN BE TAKEN UP TO FOR TI
     Route: 048

REACTIONS (4)
  - Stupor [Unknown]
  - Drug abuse [Unknown]
  - Withdrawal syndrome [Unknown]
  - Intentional overdose [Unknown]

NARRATIVE: CASE EVENT DATE: 202008
